FAERS Safety Report 5968336-0 (Version None)
Quarter: 2008Q4

REPORT INFORMATION
  Report Type: 
  Country: None (occurrence: None)
  Receive Date: 20081126
  Receipt Date: 20081121
  Transmission Date: 20090506
  Serious: Yes (Hospitalization, Other)
  Sender: FDA-Public Use
  Company Number: US-BAYER-200829395NA

PATIENT
  Age: 17 Year
  Sex: Female
  Weight: 54 kg

DRUGS (2)
  1. YAZ [Suspect]
     Indication: CONTRACEPTION
     Route: 048
     Dates: start: 20071101, end: 20080201
  2. YAZ [Suspect]
     Route: 048
     Dates: start: 20080301, end: 20080701

REACTIONS (3)
  - ABORTION SPONTANEOUS [None]
  - HOSPITALISATION [None]
  - PREGNANCY ON ORAL CONTRACEPTIVE [None]
